FAERS Safety Report 6761473-2 (Version None)
Quarter: 2010Q2

REPORT INFORMATION
  Report Type: 
  Country: None (occurrence: None)
  Receive Date: 20100607
  Receipt Date: 20100524
  Transmission Date: 20101027
  Serious: Yes (Hospitalization)
  Sender: FDA-Public Use
  Company Number: 1-22572944

PATIENT
  Age: 51 Year
  Sex: Male

DRUGS (11)
  1. BACTRIM [Suspect]
     Indication: CELLULITIS
     Dates: start: 20100209, end: 20100219
  2. APIXABAN [Suspect]
     Indication: THROMBOSIS PROPHYLAXIS
     Dosage: 2 UNITS, DAILY, ORAL
     Route: 048
     Dates: start: 20100204, end: 20100303
  3. ENOXAPARIN SODIUM [Suspect]
     Indication: THROMBOSIS PROPHYLAXIS
     Dosage: 40 MG, DAILY, SUBCUTANEOUS
     Route: 058
     Dates: start: 20100204, end: 20100209
  4. TIMOLOL MALEATE [Concomitant]
  5. DORZOLAMIDE HYDROCHLORIDE AND TIMOLOL MALEATE [Concomitant]
  6. CLOTRIMAZOLE [Concomitant]
  7. FLUOROMETHOLONE [Concomitant]
  8. FLURBIPROFEN [Concomitant]
  9. LISINOPRIL AND HYDROCHLOROTHIAZIDE [Concomitant]
  10. TRAVOPROST [Concomitant]
  11. TRIAMCINOLONE ACETONIDE [Concomitant]

REACTIONS (9)
  - DIARRHOEA [None]
  - FLUSHING [None]
  - HICCUPS [None]
  - HYPERSENSITIVITY [None]
  - HYPONATRAEMIA [None]
  - LEUKOPENIA [None]
  - PYREXIA [None]
  - RASH MACULAR [None]
  - RENAL FAILURE ACUTE [None]
